FAERS Safety Report 8911532 (Version 2)
Quarter: 2012Q4

REPORT INFORMATION
  Report Type: 
  Country: US (occurrence: US)
  Receive Date: 20121116
  Receipt Date: 20121120
  Transmission Date: 20130627
  Serious: No
  Sender: FDA-Public Use
  Company Number: US-009507513-1211USA005219

PATIENT
  Age: 51 None
  Sex: Male

DRUGS (2)
  1. PEGINTRON [Suspect]
     Indication: HEPATITIS C
     Dosage: Redipen
     Dates: start: 20121104, end: 20121115
  2. RIBAVIRIN [Suspect]
     Indication: HEPATITIS C
     Dosage: UNK
     Dates: start: 20121104, end: 20121115

REACTIONS (4)
  - Hypersensitivity [Unknown]
  - Vomiting [Unknown]
  - Pyrexia [Unknown]
  - Rash [Unknown]
